FAERS Safety Report 23456614 (Version 1)
Quarter: 2024Q1

REPORT INFORMATION
  Report Type: Spontaneous
  Country: US (occurrence: US)
  Receive Date: 20240130
  Receipt Date: 20240130
  Transmission Date: 20240410
  Serious: No
  Sender: FDA-Public Use
  Company Number: US-JNJFOC-20240138878

PATIENT
  Age: 76 Year
  Sex: Female

DRUGS (1)
  1. TYLENOL 8HR [Suspect]
     Active Substance: ACETAMINOPHEN
     Indication: Procedural pain
     Dosage: ONE AT CAPLET AT FIRST AND 2 CAPLETS ON THE SECOND TAKE
     Route: 065
     Dates: start: 20240111

REACTIONS (2)
  - Drug hypersensitivity [Recovered/Resolved]
  - Incorrect dose administered [Unknown]

NARRATIVE: CASE EVENT DATE: 20240111
